FAERS Safety Report 18265733 (Version 2)
Quarter: 2020Q4

REPORT INFORMATION
  Report Type: Spontaneous
  Country: EG (occurrence: EG)
  Receive Date: 20200914
  Receipt Date: 20201021
  Transmission Date: 20210113
  Serious: Yes (Death, Life-Threatening, Hospitalization)
  Sender: FDA-Public Use
  Company Number: EG-ROCHE-2674658

PATIENT
  Sex: Male

DRUGS (2)
  1. ACTEMRA [Suspect]
     Active Substance: TOCILIZUMAB
     Indication: RHEUMATOID ARTHRITIS
  2. ACTEMRA [Suspect]
     Active Substance: TOCILIZUMAB
     Indication: COVID-19 PNEUMONIA
     Route: 065

REACTIONS (13)
  - Blood glucose increased [Unknown]
  - Off label use [Unknown]
  - General physical health deterioration [Unknown]
  - Dehydration [Not Recovered/Not Resolved]
  - Loss of consciousness [Unknown]
  - Cardiac arrest [Unknown]
  - Oxygen saturation decreased [Unknown]
  - Incontinence [Unknown]
  - Lung disorder [Unknown]
  - Intentional product use issue [Unknown]
  - Ill-defined disorder [Unknown]
  - Coronavirus infection [Fatal]
  - Cardiac disorder [Unknown]
